FAERS Safety Report 19351103 (Version 1)
Quarter: 2021Q2

REPORT INFORMATION
  Report Type: Spontaneous
  Country: US (occurrence: US)
  Receive Date: 20210531
  Receipt Date: 20210531
  Transmission Date: 20210717
  Serious: Yes (Hospitalization, Other)
  Sender: FDA-Public Use
  Company Number: US-NOVOPROD-815791

PATIENT
  Age: 71 Year
  Sex: Male

DRUGS (3)
  1. NOVOLIN 70/30 [Suspect]
     Active Substance: INSULIN HUMAN
     Indication: PRODUCT USED FOR UNKNOWN INDICATION
     Dosage: SLIDING SCALE
     Route: 058
     Dates: start: 2011
  2. COVID?19 VACCINE NOS. [Concomitant]
     Active Substance: COVID-19 VACCINE NOS
     Indication: PRODUCT USED FOR UNKNOWN INDICATION
     Dosage: UNK
     Route: 065
     Dates: start: 202103
  3. NOVOLIN 70/30 [Suspect]
     Active Substance: INSULIN HUMAN
     Dosage: 180 IU, QD
     Route: 058

REACTIONS (8)
  - Nasopharyngitis [Recovered/Resolved]
  - Blood glucose decreased [Recovered/Resolved]
  - Condition aggravated [Unknown]
  - Sepsis [Recovered/Resolved]
  - Cholecystectomy [Recovered/Resolved]
  - Malaise [Unknown]
  - Memory impairment [Not Recovered/Not Resolved]
  - Neuropathy peripheral [Unknown]

NARRATIVE: CASE EVENT DATE: 2015
